FAERS Safety Report 7629866-9 (Version None)
Quarter: 2011Q3

REPORT INFORMATION
  Report Type: 
  Country: None (occurrence: None)
  Receive Date: 20110722
  Receipt Date: 20110713
  Transmission Date: 20111222
  Serious: Yes (Hospitalization, Congenital Anomaly, Other)
  Sender: FDA-Public Use
  Company Number: US-PFIZER INC-2007095293

PATIENT
  Sex: Female
  Weight: 3 kg

DRUGS (6)
  1. ZOFRAN [Concomitant]
     Indication: NAUSEA
     Dosage: UNK
     Route: 064
  2. ZOLOFT [Suspect]
     Dosage: 150 MG, 1X/DAY
     Route: 064
     Dates: start: 20040501, end: 20050201
  3. MORPHINE [Concomitant]
     Indication: HEADACHE
     Dosage: UNK
     Route: 064
  4. METHYLPREDNISOLONE [Concomitant]
     Dosage: UNK
     Route: 064
  5. MULTI-VITAMINS [Concomitant]
     Dosage: UNK
     Route: 064
  6. DILAUDID [Concomitant]
     Indication: HEADACHE
     Dosage: UNK
     Route: 064
     Dates: start: 20041122

REACTIONS (8)
  - MATERNAL EXPOSURE DURING PREGNANCY [None]
  - CROUP INFECTIOUS [None]
  - POST PROCEDURAL COMPLICATION [None]
  - VENTRICULAR SEPTAL DEFECT [None]
  - RESPIRATORY TRACT INFECTION [None]
  - ANOMALOUS PULMONARY VENOUS CONNECTION [None]
  - STRABISMUS [None]
  - EAR INFECTION [None]
